FAERS Safety Report 6116168-5 (Version None)
Quarter: 2009Q1

REPORT INFORMATION
  Report Type: 
  Country: None (occurrence: None)
  Receive Date: 20090314
  Receipt Date: 20081201
  Transmission Date: 20090719
  Serious: No
  Sender: FDA-Public Use
  Company Number: US-ABBOTT-08P-163-0490630-00

PATIENT
  Sex: Female
  Weight: 99.88 kg

DRUGS (15)
  1. HUMIRA [Suspect]
     Indication: PSORIASIS
     Route: 058
     Dates: start: 20070601
  2. HUMIRA [Suspect]
     Indication: PSORIATIC ARTHROPATHY
  3. TRIAMTERENE [Concomitant]
     Indication: DIURETIC THERAPY
     Dosage: 37.5/25MG
     Route: 048
  4. METOPROLOL TARTRATE [Concomitant]
     Indication: HYPERTENSION
     Route: 048
  5. LEVOTHYROXINE SODIUM [Concomitant]
     Indication: HYPOTHYROIDISM
     Dosage: VERIFIED DOSE TWICE
     Route: 048
  6. CELECOXIB [Concomitant]
     Indication: ARTHRITIS
     Route: 048
  7. FOLIC ACID [Concomitant]
     Indication: MEDICAL DIET
     Route: 048
  8. POTASSIUM CHLORIDE [Concomitant]
     Indication: MEDICAL DIET
     Route: 048
  9. LORAZEPAM [Concomitant]
     Indication: ANXIETY
     Route: 048
  10. ALENDRONATE SODIUM [Concomitant]
     Indication: OSTEOPOROSIS
     Route: 048
  11. VIGRAN [Concomitant]
     Indication: MEDICAL DIET
     Route: 048
  12. FISH OIL [Concomitant]
     Indication: MEDICAL DIET
     Route: 048
  13. METHOTREXATE [Concomitant]
     Indication: PSORIATIC ARTHROPATHY
     Dosage: 2.5MG X 5 PILLS
     Route: 048
  14. METFORMIN HYDROCHLORIDE [Concomitant]
     Indication: DIABETES MELLITUS
     Route: 048
  15. PREDNISONE [Concomitant]
     Indication: PSORIATIC ARTHROPATHY
     Route: 048

REACTIONS (2)
  - ARTHRALGIA [None]
  - PLANTAR FASCIITIS [None]
